FAERS Safety Report 6423223-9 (Version None)
Quarter: 2009Q4

REPORT INFORMATION
  Report Type: 
  Country: None (occurrence: None)
  Receive Date: 20091029
  Receipt Date: 20091022
  Transmission Date: 20100525
  Serious: Yes (Hospitalization, Disabling)
  Sender: FDA-Public Use
  Company Number: ADR47372009

PATIENT
  Age: 71 Year
  Sex: Female

DRUGS (6)
  1. SIMVASTATIN [Suspect]
     Indication: CARDIOVASCULAR EVENT PROPHYLAXIS
     Dosage: 80 MG - 1/1 DAY ORAL
     Route: 048
     Dates: start: 20061101, end: 20070115
  2. AMLODIPINE [Concomitant]
  3. ASPIRIN [Concomitant]
  4. ATENOLOL [Concomitant]
  5. NOVOMIX [Concomitant]
  6. RAMIPRIL [Concomitant]

REACTIONS (2)
  - ABASIA [None]
  - RHABDOMYOLYSIS [None]
